FAERS Safety Report 4963000-9 (Version None)
Quarter: 2006Q2

REPORT INFORMATION
  Report Type: 
  Country: None (occurrence: None)
  Receive Date: 20060405
  Receipt Date: 20060327
  Transmission Date: 20061013
  Serious: Yes (Death, Life-Threatening, Other)
  Sender: FDA-Public Use
  Company Number: GB-JNJFOC-20060204756

PATIENT
  Sex: Male
  Weight: 113 kg

DRUGS (7)
  1. REMICADE [Suspect]
     Indication: ANKYLOSING SPONDYLITIS
     Route: 042
  2. METHOTREXATE [Concomitant]
     Route: 065
  3. CO-CODAMOL [Concomitant]
     Route: 065
  4. CO-CODAMOL [Concomitant]
     Route: 065
  5. FOLIC ACID [Concomitant]
     Route: 065
  6. NAPROXEN [Concomitant]
     Route: 065
  7. PHYLLOCONTIN [Concomitant]
     Route: 065

REACTIONS (1)
  - MYOCARDIAL ISCHAEMIA [None]
